FAERS Safety Report 9244812 (Version 2)
Quarter: 2013Q2

REPORT INFORMATION
  Report Type: Report from Study
  Country: DE (occurrence: DE)
  Receive Date: 20130422
  Receipt Date: 20130501
  Transmission Date: 20140414
  Serious: Yes (Hospitalization)
  Sender: FDA-Public Use
  Company Number: PHHY2013DE038631

PATIENT
  Age: 52 Year
  Sex: Male

DRUGS (2)
  1. INTERFERON BETA-1B [Suspect]
     Indication: MULTIPLE SCLEROSIS
     Dosage: 250 UG, UNK
     Route: 058
     Dates: start: 20120127
  2. BELOC ZOK [Concomitant]
     Indication: HYPERTENSION
     Dosage: UNK
     Route: 048
     Dates: start: 201111

REACTIONS (1)
  - Trigeminal neuralgia [Recovered/Resolved]
